FAERS Safety Report 4900851-0 (Version None)
Quarter: 2006Q1

REPORT INFORMATION
  Report Type: 
  Country: None (occurrence: None)
  Receive Date: 20060113
  Receipt Date: 20051202
  Transmission Date: 20060701
  Serious: No
  Sender: FDA-Public Use
  Company Number: 2005SP004250

PATIENT
  Age: 50 Year
  Sex: Male
  Weight: 69.4003 kg

DRUGS (1)
  1. LUNESTA [Suspect]
     Indication: INSOMNIA
     Dosage: 2 MG;UNKNOWN; ORAL
     Route: 048
     Dates: start: 20051101, end: 20051202

REACTIONS (2)
  - DRUG EFFECT DECREASED [None]
  - REBOUND EFFECT [None]
